FAERS Safety Report 9039667 (Version 1)
Quarter: 2013Q1

REPORT INFORMATION
  Report Type: Report from Study
  Country: US (occurrence: US)
  Receive Date: 20130129
  Receipt Date: 20130129
  Transmission Date: 20140127
  Serious: Yes (Hospitalization)
  Sender: FDA-Public Use
  Company Number: US-ABBOTT-12P-163-0935809-00

PATIENT
  Age: 65 Year
  Sex: Female
  Weight: 89.44 kg

DRUGS (8)
  1. HUMIRA 40 MG/0.8 ML PEN [Suspect]
     Indication: CROHN^S DISEASE
     Route: 058
     Dates: start: 2008
  2. VITAMIN B12 [Concomitant]
     Indication: VITAMIN SUPPLEMENTATION
  3. VITAMIN C [Concomitant]
     Indication: VITAMIN SUPPLEMENTATION
  4. PROTONIX [Concomitant]
     Indication: PRODUCT USED FOR UNKNOWN INDICATION
  5. PAXIL [Concomitant]
     Indication: PRODUCT USED FOR UNKNOWN INDICATION
  6. IMURAN [Concomitant]
     Indication: CROHN^S DISEASE
  7. DICYCLOMINE [Concomitant]
     Indication: PRODUCT USED FOR UNKNOWN INDICATION
  8. HYDROCHLOROTHIAZIDE [Concomitant]
     Indication: PRODUCT USED FOR UNKNOWN INDICATION

REACTIONS (3)
  - Knee arthroplasty [Recovered/Resolved]
  - Joint hyperextension [Recovered/Resolved]
  - Local swelling [Recovered/Resolved]
